FAERS Safety Report 6122104-8 (Version None)
Quarter: 2009Q1

REPORT INFORMATION
  Report Type: 
  Country: None (occurrence: None)
  Receive Date: 20090316
  Receipt Date: 20090316
  Transmission Date: 20090719
  Serious: Yes (Other)
  Sender: FDA-Public Use
  Company Number: None

PATIENT
  Age: 36 Year
  Sex: Female
  Weight: 87.5442 kg

DRUGS (2)
  1. CELEXA [Suspect]
     Indication: PAIN
     Dosage: CELEXA 1X'S DAILY PO
     Route: 048
     Dates: start: 20080201, end: 20080509
  2. CELEXA [Suspect]
     Indication: PAIN
     Dosage: CELEXA 1X'S DAILY PO
     Route: 048
     Dates: start: 20081003, end: 20081020

REACTIONS (6)
  - ABASIA [None]
  - AMNESIA [None]
  - COORDINATION ABNORMAL [None]
  - MUSCLE SPASMS [None]
  - RESPIRATORY DISORDER [None]
  - SPEECH DISORDER [None]
